FAERS Safety Report 7867773-7 (Version None)
Quarter: 2011Q4

REPORT INFORMATION
  Report Type: 
  Country: None (occurrence: None)
  Receive Date: 20111028
  Receipt Date: 20111019
  Transmission Date: 20120403
  Serious: Yes (Other)
  Sender: FDA-Public Use
  Company Number: ZA-ASTRAZENECA-2011SE63623

PATIENT
  Age: 30 Year
  Sex: Male

DRUGS (3)
  1. CONCERTA [Concomitant]
     Route: 048
  2. TEGRETOL [Concomitant]
     Route: 048
  3. SEROQUEL [Suspect]
     Route: 048

REACTIONS (1)
  - ENCEPHALOPATHY [None]
